FAERS Safety Report 15952241 (Version 2)
Quarter: 2021Q1

REPORT INFORMATION
  Report Type: Spontaneous
  Country: US (occurrence: US)
  Receive Date: 20190212
  Receipt Date: 20210120
  Transmission Date: 20210419
  Serious: No
  Sender: FDA-Public Use
  Company Number: US-PFIZER INC-2019058956

PATIENT
  Age: 54 Year
  Sex: Female

DRUGS (1)
  1. SOMAVERT [Suspect]
     Active Substance: PEGVISOMANT
     Dosage: 15 MG, DAILY
     Dates: start: 20140311

REACTIONS (15)
  - Headache [Unknown]
  - Jaw disorder [Unknown]
  - Fatigue [Unknown]
  - Dehydration [Unknown]
  - Liver function test increased [Recovered/Resolved]
  - Hyperhidrosis [Unknown]
  - Arthralgia [Unknown]
  - Alopecia [Not Recovered/Not Resolved]
  - Thyroglobulin decreased [Unknown]
  - Neck pain [Unknown]
  - Blood potassium decreased [Unknown]
  - Temperature intolerance [Unknown]
  - Vision blurred [Unknown]
  - Dry eye [Unknown]
  - Asthenia [Unknown]
